FAERS Safety Report 8424716-5 (Version None)
Quarter: 2012Q2

REPORT INFORMATION
  Report Type: 
  Country: None (occurrence: None)
  Receive Date: 20120611
  Receipt Date: 20120605
  Transmission Date: 20120825
  Serious: No
  Sender: FDA-Public Use
  Company Number: US-BIOGENIDEC-2010BI017812

PATIENT
  Sex: Female

DRUGS (2)
  1. TYSABRI [Suspect]
     Indication: MULTIPLE SCLEROSIS
     Route: 042
     Dates: start: 20090910, end: 20120424
  2. SOLU-MEDROL [Concomitant]
     Indication: PRODUCT USED FOR UNKNOWN INDICATION

REACTIONS (7)
  - GAIT DISTURBANCE [None]
  - ANGER [None]
  - LOSS OF CONTROL OF LEGS [None]
  - PAIN [None]
  - MIGRAINE [None]
  - DRUG INEFFECTIVE [None]
  - MENTAL IMPAIRMENT [None]
